FAERS Safety Report 14479532 (Version 1)
Quarter: 2018Q1

REPORT INFORMATION
  Report Type: Spontaneous
  Country: US (occurrence: US)
  Receive Date: 20180202
  Receipt Date: 20180202
  Transmission Date: 20180509
  Serious: No
  Sender: FDA-Public Use
  Company Number: US-009507513-1801USA013039

PATIENT
  Age: 38 Year
  Sex: Female

DRUGS (1)
  1. NEXPLANON [Suspect]
     Active Substance: ETONOGESTREL
     Indication: CONTRACEPTION
     Dosage: UNK, ONCE
     Route: 015
     Dates: start: 20170418, end: 20171201

REACTIONS (3)
  - Incorrect route of drug administration [Unknown]
  - Incorrect drug administration duration [Unknown]
  - Menstruation irregular [Unknown]

NARRATIVE: CASE EVENT DATE: 2017
